FAERS Safety Report 8896474 (Version 1)
Quarter: 2012Q4

REPORT INFORMATION
  Report Type: Spontaneous
  Country: CN (occurrence: None)
  Receive Date: 20121102
  Receipt Date: 20121102
  Transmission Date: 20130627
  Serious: Yes (Death, Other)
  Sender: FDA-Public Use
  Company Number: CN-2012-3712

PATIENT

DRUGS (2)
  1. NAVELBINE [Suspect]
     Indication: LUNG NEOPLASM MALIGNANT
     Dosage: 25 mg/m2, per chemo regim, Intravenous
     Route: 042
  2. CARBOPLATIN (CARBOPLATIN) [Suspect]
     Indication: LUNG NEOPLASM MALIGNANT
     Dosage: 5 mg/ml, per chemo regim, Intravenous
     Route: 042

REACTIONS (1)
  - Radiation pneumonitis [None]
